FAERS Safety Report 6755660-7 (Version None)
Quarter: 2010Q2

REPORT INFORMATION
  Report Type: 
  Country: None (occurrence: None)
  Receive Date: 20100604
  Receipt Date: 20100525
  Transmission Date: 20101027
  Serious: Yes (Hospitalization, Disabling, Other)
  Sender: FDA-Public Use
  Company Number: US-BAYER-200941149NA

PATIENT
  Age: 30 Year
  Sex: Female
  Weight: 136 kg

DRUGS (20)
  1. YAZ [Suspect]
     Indication: DRUG USE FOR UNKNOWN INDICATION
     Dates: start: 20071001
  2. YASMIN [Suspect]
     Indication: PREMENSTRUAL SYNDROME
     Route: 048
     Dates: start: 20030801, end: 20071201
  3. LEVAQUIN [Concomitant]
     Dates: start: 20060701, end: 20080501
  4. AZITHROMYCIN [Concomitant]
     Dates: start: 20040101, end: 20080101
  5. AMOXICILLIN + CLAVULANATE POTASSIUM [Concomitant]
     Dates: start: 20040101, end: 20070101
  6. COMBIVENT [Concomitant]
     Dates: start: 20040101, end: 20080401
  7. ADVAIR DISKUS 100/50 [Concomitant]
     Dates: start: 20040101, end: 20080401
  8. ZYFLO [Concomitant]
     Dates: start: 20040101, end: 20080401
  9. SINGULAIR [Concomitant]
     Dates: start: 20040101, end: 20071101
  10. DUONEB [Concomitant]
     Dates: start: 20040101, end: 20071101
  11. METHYLPREDNISOLONE [Concomitant]
     Dates: start: 20040101, end: 20071101
  12. IPRATROPIUM [Concomitant]
     Dates: start: 20040101, end: 20071101
  13. ATENOLOL [Concomitant]
     Dates: start: 20010101
  14. LASIX [Concomitant]
     Dates: start: 20040101, end: 20071201
  15. SYNTHROID [Concomitant]
     Dates: start: 20010101, end: 20080101
  16. GLUCOPHAGE [Concomitant]
     Dates: start: 20070101
  17. PAXIL [Concomitant]
     Indication: ANXIETY
     Dates: start: 20060101, end: 20080101
  18. NEXIUM [Concomitant]
     Indication: GASTROOESOPHAGEAL REFLUX DISEASE
     Dates: start: 20060101
  19. PROTONIX [Concomitant]
     Indication: GASTROOESOPHAGEAL REFLUX DISEASE
     Dates: start: 20060101, end: 20070101
  20. ZYRTEC [Concomitant]
     Indication: MULTIPLE ALLERGIES
     Dates: start: 20060101, end: 20070101

REACTIONS (12)
  - AMNESIA [None]
  - ANXIETY [None]
  - ATTENTION DEFICIT/HYPERACTIVITY DISORDER [None]
  - COGNITIVE DISORDER [None]
  - DEEP VEIN THROMBOSIS [None]
  - DEMENTIA [None]
  - DEPRESSION [None]
  - DIZZINESS [None]
  - INCOHERENT [None]
  - SPEECH DISORDER [None]
  - TRANSIENT ISCHAEMIC ATTACK [None]
  - VISION BLURRED [None]
